FAERS Safety Report 11186746 (Version 2)
Quarter: 2015Q2

REPORT INFORMATION
  Report Type: Spontaneous
  Country: US (occurrence: US)
  Receive Date: 20150613
  Receipt Date: 20150626
  Transmission Date: 20150821
  Serious: No
  Sender: FDA-Public Use
  Company Number: US-009507513-1506USA002263

PATIENT
  Age: 72 Year
  Sex: Female
  Weight: 72.56 kg

DRUGS (1)
  1. DORZOLAMIDE HYDROCHLORIDE (+) TIMOLOL MALEATE [Suspect]
     Active Substance: DORZOLAMIDE HYDROCHLORIDE\TIMOLOL MALEATE
     Indication: GLAUCOMA
     Dosage: 1 DROP IN EACH EYE, BID
     Route: 047

REACTIONS (1)
  - Eye irritation [Unknown]
